FAERS Safety Report 7728842-5 (Version None)
Quarter: 2011Q3

REPORT INFORMATION
  Report Type: 
  Country: None (occurrence: None)
  Receive Date: 20110831
  Receipt Date: 20110831
  Transmission Date: 20111222
  Serious: Yes (Other)
  Sender: FDA-Public Use
  Company Number: None

PATIENT
  Age: 86 Year
  Sex: Male
  Weight: 92.9874 kg

DRUGS (2)
  1. LOSARTAN POTASSIUM [Suspect]
     Indication: HYPERTENSION
     Dosage: 50 MG 1X DAY REDUCED TO 25MG 1X DAY
     Dates: start: 20110729
  2. LOSARTAN POTASSIUM [Suspect]
     Indication: HYPERTENSION
     Dosage: 50 MG 1X DAY REDUCED TO 25MG 1X DAY
     Dates: start: 20110720

REACTIONS (2)
  - FALL [None]
  - SOMNOLENCE [None]
